FAERS Safety Report 9164870 (Version 1)
Quarter: 2013Q1

REPORT INFORMATION
  Report Type: Spontaneous
  Country: US (occurrence: None)
  Receive Date: 20130227
  Receipt Date: 20130227
  Transmission Date: 20140127
  Serious: Yes (Other)
  Sender: FDA-Public Use
  Company Number: TPA2013A01655

PATIENT
  Age: 51 Year
  Sex: Female
  Weight: 82.1 kg

DRUGS (6)
  1. DEXILANT (DEXLANSOPRAZOLE) [Suspect]
     Route: 048
     Dates: start: 201108
  2. CARDIZEM (DILTIAZEM) [Concomitant]
  3. DIGOXIN (DIGOXIN) [Concomitant]
  4. NORCO (PARACETAMOL, HYDROCODONE BITARTRATE) [Concomitant]
  5. XANAX (ALPRAZOLAM) [Concomitant]
  6. ZANEFLEX (TIZANIDINE HYDROCHLORIDE) [Concomitant]

REACTIONS (4)
  - Chest pain [None]
  - Lung neoplasm [None]
  - Musculoskeletal chest pain [None]
  - Hernia repair [None]
